FAERS Safety Report 7239608-7 (Version None)
Quarter: 2011Q1

REPORT INFORMATION
  Report Type: 
  Country: None (occurrence: None)
  Receive Date: 20110122
  Receipt Date: 20110117
  Transmission Date: 20110831
  Serious: No
  Sender: FDA-Public Use
  Company Number: US-B.I. PHARMACEUTICALS,INC./RIDGEFIELD-2011-BP-01339BP

PATIENT
  Sex: Female

DRUGS (11)
  1. PRADAXA [Suspect]
     Indication: ATRIAL FIBRILLATION
     Dosage: 300 MG
     Route: 048
     Dates: start: 20110116
  2. TYLENOL-500 [Concomitant]
     Indication: ARTHRITIS
  3. CENTRUM [Concomitant]
     Indication: MEDICAL DIET
  4. VITAMIN B-12 [Concomitant]
     Indication: VITAMIN SUPPLEMENTATION
  5. LEVOTHYROXINE SODIUM [Concomitant]
     Indication: HYPOTHYROIDISM
  6. CYMBALTA [Concomitant]
     Indication: NERVE INJURY
  7. TORSEMIDE [Concomitant]
     Indication: DIURETIC THERAPY
  8. PREVACID [Concomitant]
     Indication: GASTROOESOPHAGEAL REFLUX DISEASE
  9. METOPROLOL [Concomitant]
     Indication: HYPERTENSION
  10. ASCORBIC ACID [Concomitant]
     Indication: VITAMIN SUPPLEMENTATION
  11. CITRACAL [Concomitant]

REACTIONS (1)
  - DIZZINESS [None]
